FAERS Safety Report 7473302-2 (Version None)
Quarter: 2011Q2

REPORT INFORMATION
  Report Type: 
  Country: None (occurrence: None)
  Receive Date: 20110511
  Receipt Date: 20110427
  Transmission Date: 20111010
  Serious: Yes (Hospitalization)
  Sender: FDA-Public Use
  Company Number: US-BAYER-201025795NA

PATIENT
  Age: 57 Year
  Sex: Female
  Weight: 123.6 kg

DRUGS (42)
  1. ALPRAZOLAM [Concomitant]
     Indication: ANXIETY
     Dosage: 1.5 MG (DAILY DOSE), , ORAL
     Route: 048
     Dates: start: 20011001
  2. INSULIN [Concomitant]
     Indication: DIABETES MELLITUS
     Route: 058
     Dates: start: 19950801
  3. FENTANYL [Concomitant]
     Indication: PAIN
     Dosage: X72 HOURS
     Route: 062
     Dates: start: 20021001
  4. FLONASE [Concomitant]
     Indication: ASTHMA
     Route: 045
     Dates: start: 20080501
  5. LANTUS [Concomitant]
     Indication: DIABETES MELLITUS
     Route: 058
     Dates: start: 20011001
  6. LEXAPRO [Concomitant]
     Indication: DEPRESSION
     Route: 048
     Dates: start: 20080301
  7. METHYLPEDNISOLONE SODIUM SUCCINATE [Concomitant]
     Indication: ANTIINFLAMMATORY THERAPY
     Route: 048
     Dates: start: 20091215
  8. MORPHINE SULFATE [Concomitant]
     Indication: PAIN
     Route: 048
     Dates: start: 20021001
  9. PROTONIX [Concomitant]
     Indication: GASTROOESOPHAGEAL REFLUX DISEASE
     Route: 048
     Dates: start: 20051201
  10. MICONAZOLE NITRATE [Concomitant]
     Indication: RASH
     Route: 061
     Dates: start: 20070501
  11. ZITHROMAX [Concomitant]
     Indication: ANTIBIOTIC PROPHYLAXIS
     Route: 048
     Dates: start: 20071001
  12. NEXAVAR [Suspect]
     Route: 048
     Dates: start: 20100322, end: 20100404
  13. NEXAVAR [Suspect]
     Route: 048
     Dates: start: 20100422, end: 20100504
  14. METAMUCIL-2 [Concomitant]
     Indication: CONSTIPATION PROPHYLAXIS
     Route: 048
     Dates: start: 19950101
  15. SPIRONOLACTONE [Concomitant]
     Indication: CARDIOVASCULAR DISORDER
     Route: 048
     Dates: start: 20060601
  16. LEVAQUIN [Concomitant]
     Indication: UPPER RESPIRATORY TRACT INFECTION
     Route: 048
     Dates: start: 20100215, end: 20100222
  17. NEXAVAR [Suspect]
     Route: 048
     Dates: start: 20100504
  18. ALBUTEROL [Concomitant]
     Indication: ASTHMA
     Route: 055
     Dates: start: 19980801
  19. ASPIRIN [Concomitant]
     Indication: PAIN
     Route: 048
     Dates: start: 20020301
  20. FLUTICASONE PROPIONATE [Concomitant]
     Indication: ASTHMA
     Route: 048
     Dates: start: 20090501
  21. IMDUR [Concomitant]
     Indication: HYPERTENSION
     Route: 048
     Dates: start: 20061201
  22. POTASSIUM CHLORIDE [Concomitant]
     Indication: MINERAL SUPPLEMENTATION
     Route: 048
     Dates: start: 20091201
  23. BUMETANIDE [Concomitant]
     Indication: RENAL FAILURE
     Route: 048
     Dates: start: 20060601
  24. ZOFRAN [Concomitant]
     Indication: PROPHYLAXIS
     Route: 048
     Dates: start: 20100101
  25. ZYRTEC [Concomitant]
     Indication: ANTIALLERGIC THERAPY
     Route: 048
     Dates: start: 20090501
  26. LIDEX [Concomitant]
     Indication: RASH
     Route: 061
     Dates: start: 20070501
  27. DRISDOL [Concomitant]
     Indication: OSTEOARTHRITIS
     Dates: start: 20080601
  28. NITROGLYCERIN [Concomitant]
     Indication: CARDIOVASCULAR DISORDER
     Route: 048
     Dates: start: 20060201
  29. TEMAZ [Concomitant]
     Indication: SLEEP DISORDER THERAPY
     Route: 048
     Dates: start: 20080301
  30. ATENOLOL [Concomitant]
     Indication: CARDIOVASCULAR DISORDER
     Route: 048
     Dates: start: 19980601
  31. BUPROPION HYDROCHLORIDE [Concomitant]
     Indication: DEPRESSION
     Route: 048
     Dates: start: 20090101
  32. CYCLOBENZAPRINE HYDROCHLORIDE [Concomitant]
     Indication: FIBROMYALGIA
     Route: 048
     Dates: start: 20011001
  33. FISH OIL [Concomitant]
     Indication: HYPERTRIGLYCERIDAEMIA
     Route: 048
     Dates: start: 20061001
  34. LEVOTHYROXINE SODIUM [Concomitant]
     Indication: HYPOTHYROIDISM
     Route: 048
     Dates: start: 20020101
  35. PROCHLORPERAZINE MALEATE [Concomitant]
     Indication: PROPHYLAXIS
     Route: 048
     Dates: start: 20100101
  36. DOCUSATE SODIUM [Concomitant]
     Indication: CONSTIPATION PROPHYLAXIS
     Route: 048
     Dates: start: 20011001
  37. NOVOLOG [Concomitant]
     Indication: DIABETES MELLITUS
     Route: 058
     Dates: start: 19950801
  38. PATANOL [Concomitant]
     Indication: HYPERSENSITIVITY
     Dosage: 2 DROPS
     Route: 031
     Dates: start: 20080901
  39. VITAMIN B-12 [Concomitant]
     Indication: VITAMIN SUPPLEMENTATION
     Dosage: 100 MCG/ML
     Route: 048
     Dates: start: 20071201
  40. NEXAVAR [Suspect]
     Indication: HEPATIC NEOPLASM MALIGNANT
     Route: 048
     Dates: start: 20100301, end: 20100317
  41. METOCLOPRAMIDE [Concomitant]
     Indication: IMPAIRED GASTRIC EMPTYING
     Route: 048
     Dates: start: 20060601
  42. MULTI-VITAMIN [Concomitant]
     Indication: VITAMIN SUPPLEMENTATION
     Dosage: 1 TABLET
     Route: 048
     Dates: start: 19890601

REACTIONS (3)
  - DEEP VEIN THROMBOSIS [None]
  - HYPERTENSION [None]
  - CHEST PAIN [None]
